FAERS Safety Report 11158823 (Version 3)
Quarter: 2015Q3

REPORT INFORMATION
  Report Type: Spontaneous
  Country: BR (occurrence: BR)
  Receive Date: 20150603
  Receipt Date: 20150710
  Transmission Date: 20151125
  Serious: Yes (Hospitalization)
  Sender: FDA-Public Use
  Company Number: BR-009507513-1506BRA001090

PATIENT
  Age: 47 Year
  Sex: Male
  Weight: 70 kg

DRUGS (4)
  1. NASONEX [Suspect]
     Active Substance: MOMETASONE FUROATE
     Dosage: 50 MCG - 2 APPLICATION IN EACH NOSTRIL, BID
     Route: 045
     Dates: start: 201502, end: 201504
  2. NASONEX [Suspect]
     Active Substance: MOMETASONE FUROATE
     Indication: NASAL POLYPS
     Dosage: 50 MCG - 1 APPLICATION IN EACH NOSTRIL, BID
     Route: 045
     Dates: start: 2007, end: 201407
  3. NASONEX [Suspect]
     Active Substance: MOMETASONE FUROATE
     Dosage: 50 MCG - 2 APPLICATION IN EACH NOSTRIL, BID
     Route: 045
     Dates: start: 201505
  4. NASONEX [Suspect]
     Active Substance: MOMETASONE FUROATE
     Dosage: 50 MCG - 2 APPLICATION IN EACH NOSTRIL, BID
     Route: 045
     Dates: start: 201408, end: 201502

REACTIONS (9)
  - Nasal polyps [Recovered/Resolved]
  - Underdose [Unknown]
  - Drug ineffective [Recovered/Resolved]
  - Nasal polyps [Recovered/Resolved]
  - Dyspnoea [Not Recovered/Not Resolved]
  - Nasal polyps [Not Recovered/Not Resolved]
  - Chronic sinusitis [Not Recovered/Not Resolved]
  - Nasal polyps [Recovered/Resolved]
  - Product quality issue [Unknown]

NARRATIVE: CASE EVENT DATE: 201408
